FAERS Safety Report 9467070 (Version 1)
Quarter: 2013Q3

REPORT INFORMATION
  Report Type: Spontaneous
  Country: US (occurrence: US)
  Receive Date: 20130820
  Receipt Date: 20130820
  Transmission Date: 20140515
  Serious: No
  Sender: FDA-Public Use
  Company Number: US-009507513-1308USA006236

PATIENT
  Sex: Female

DRUGS (2)
  1. AZASITE [Suspect]
     Indication: EYE INFLAMMATION
     Dosage: ONE DROP IN EACH EYE ONCE DAILY FOR 30 DAYS
     Route: 047
     Dates: start: 20130729, end: 20130809
  2. AZASITE [Suspect]
     Indication: DRY EYE

REACTIONS (2)
  - Eye swelling [Recovered/Resolved]
  - Inappropriate schedule of drug administration [Unknown]
